FAERS Safety Report 15093394 (Version 1)
Quarter: 2018Q2

REPORT INFORMATION
  Report Type: Report from Study
  Country: US (occurrence: US)
  Receive Date: 20180629
  Receipt Date: 20180629
  Transmission Date: 20180711
  Serious: Yes (Hospitalization, Other)
  Sender: FDA-Public Use
  Company Number: US-B.I. PHARMACEUTICALS,INC./RIDGEFIELD-2017-BI-061269

PATIENT
  Sex: Female

DRUGS (3)
  1. OFEV [Suspect]
     Active Substance: NINTEDANIB
     Route: 048
     Dates: start: 20171113
  2. OFEV [Suspect]
     Active Substance: NINTEDANIB
     Indication: IDIOPATHIC PULMONARY FIBROSIS
     Route: 048
     Dates: start: 20171019
  3. AMLODIPINE [Concomitant]
     Active Substance: AMLODIPINE BESYLATE
     Indication: PRODUCT USED FOR UNKNOWN INDICATION
     Route: 065

REACTIONS (14)
  - Constipation [Not Recovered/Not Resolved]
  - Dyspnoea exertional [Unknown]
  - Decreased appetite [Recovered/Resolved with Sequelae]
  - Dry skin [Unknown]
  - Diarrhoea [Not Recovered/Not Resolved]
  - Liver function test [Unknown]
  - Acute kidney injury [Unknown]
  - Nausea [Unknown]
  - Fatigue [Recovered/Resolved with Sequelae]
  - Diarrhoea [Recovered/Resolved with Sequelae]
  - Dehydration [Unknown]
  - Pruritus [Unknown]
  - Dysgeusia [Recovered/Resolved with Sequelae]
  - Bowel movement irregularity [Not Recovered/Not Resolved]
